FAERS Safety Report 5487494-8 (Version None)
Quarter: 2007Q4

REPORT INFORMATION
  Report Type: 
  Country: None (occurrence: None)
  Receive Date: 20071016
  Receipt Date: 20071005
  Transmission Date: 20080405
  Serious: Yes (Other)
  Sender: FDA-Public Use
  Company Number: GB-PFIZER INC-2007080989

PATIENT
  Sex: Male

DRUGS (3)
  1. CHAMPIX [Suspect]
     Route: 048
  2. CODEINE [Suspect]
  3. OMEPRAZOLE [Concomitant]

REACTIONS (2)
  - DRUG SCREEN POSITIVE [None]
  - NAUSEA [None]
